FAERS Safety Report 25744320 (Version 2)
Quarter: 2025Q4

REPORT INFORMATION
  Report Type: Report from Study
  Country: US (occurrence: US)
  Receive Date: 20250901
  Receipt Date: 20251010
  Transmission Date: 20260118
  Serious: No
  Sender: JOHNSON AND JOHNSON
  Company Number: US-JNJFOC-20250835731

PATIENT
  Age: 4 Decade
  Sex: Male

DRUGS (3)
  1. TREMFYA [Suspect]
     Active Substance: GUSELKUMAB
     Indication: Psoriasis
     Dosage: PATIENT HAD HIS VERY LAST ONE PRESS TREMFYA INJECTION FOR PSO ON 21-JUN-2025
     Route: 065
     Dates: start: 202501, end: 20250621
  2. SERTRALINE [Concomitant]
     Active Substance: SERTRALINE HYDROCHLORIDE
     Indication: Depression
     Dates: start: 202409
  3. ZYRTEC [Concomitant]
     Active Substance: CETIRIZINE HYDROCHLORIDE
     Indication: Multiple allergies
     Dates: start: 2023

REACTIONS (1)
  - Hepatic enzyme abnormal [Unknown]
